FAERS Safety Report 21571849 (Version 1)
Quarter: 2022Q4

REPORT INFORMATION
  Report Type: Spontaneous
  Country: US (occurrence: US)
  Receive Date: 20221109
  Receipt Date: 20221109
  Transmission Date: 20230113
  Serious: No
  Sender: FDA-Public Use
  Company Number: US-AMGEN-USASP2022187882

PATIENT
  Age: 87 Year
  Sex: Male

DRUGS (1)
  1. MVASI [Suspect]
     Active Substance: BEVACIZUMAB-AWWB
     Indication: Rectal cancer
     Dosage: 375 MILLIGRAM, Q4WK
     Route: 042
     Dates: start: 202101

REACTIONS (1)
  - Hypertension [Unknown]

NARRATIVE: CASE EVENT DATE: 20220712
